FAERS Safety Report 25767815 (Version 1)
Quarter: 2025Q3

REPORT INFORMATION
  Report Type: Spontaneous
  Country: US (occurrence: None)
  Receive Date: 20250904
  Receipt Date: 20250904
  Transmission Date: 20251021
  Serious: Yes (Life-Threatening, Hospitalization)
  Sender: FDA-CTU
  Company Number: None

PATIENT
  Age: 69 Year
  Sex: Female
  Weight: 79.9 kg

DRUGS (1)
  1. HUMAN CHORIONIC GONADOTROPIN [Suspect]
     Active Substance: GONADOTROPHIN, CHORIONIC
     Indication: Weight decreased
     Route: 030
     Dates: start: 20250903, end: 20250903

REACTIONS (4)
  - Flushing [None]
  - Dysphagia [None]
  - Insomnia [None]
  - Rash [None]

NARRATIVE: CASE EVENT DATE: 20250904
